FAERS Safety Report 15315203 (Version 4)
Quarter: 2019Q2

REPORT INFORMATION
  Report Type: Spontaneous
  Country: US (occurrence: US)
  Receive Date: 20180824
  Receipt Date: 20190611
  Transmission Date: 20190711
  Serious: Yes (Other)
  Sender: FDA-Public Use
  Company Number: US-PFIZER INC-2018338383

PATIENT
  Age: 79 Year
  Sex: Female

DRUGS (2)
  1. XELJANZ [Suspect]
     Active Substance: TOFACITINIB CITRATE
     Indication: RHEUMATOID ARTHRITIS
     Dosage: 5 MG, DAILY
     Route: 048
  2. XELJANZ [Suspect]
     Active Substance: TOFACITINIB CITRATE
     Dosage: 5 MG, DAILY

REACTIONS (12)
  - Abdominal pain upper [Unknown]
  - Anxiety [Unknown]
  - Amnesia [Unknown]
  - Eye pruritus [Unknown]
  - Fall [Unknown]
  - Rash [Recovered/Resolved]
  - Decreased appetite [Unknown]
  - Malaise [Unknown]
  - Hip fracture [Unknown]
  - Depression [Unknown]
  - Balance disorder [Unknown]
  - Pain [Unknown]
